FAERS Safety Report 7621033-8 (Version None)
Quarter: 2011Q3

REPORT INFORMATION
  Report Type: 
  Country: None (occurrence: None)
  Receive Date: 20110719
  Receipt Date: 20100916
  Transmission Date: 20111222
  Serious: No
  Sender: FDA-Public Use
  Company Number: US-KINGPHARMUSA00001-K201001154

PATIENT
  Age: 46 Year
  Sex: Female
  Weight: 56.236 kg

DRUGS (3)
  1. LEVOXYL [Suspect]
     Dosage: 12.5 MCG, SINGLE
     Route: 048
     Dates: start: 20100914, end: 20100914
  2. VITAMIN TAB [Concomitant]
  3. LEVOXYL [Suspect]
     Dosage: 12.5 MCG, QD
     Route: 048
     Dates: start: 20100301, end: 20100601

REACTIONS (3)
  - HEART RATE INCREASED [None]
  - PALPITATIONS [None]
  - TACHYCARDIA [None]
